FAERS Safety Report 26063813 (Version 1)
Quarter: 2025Q4

REPORT INFORMATION
  Report Type: Spontaneous
  Country: CA (occurrence: CA)
  Receive Date: 20251119
  Receipt Date: 20251119
  Transmission Date: 20260117
  Serious: Yes (Other)
  Sender: ACCORD
  Company Number: None

PATIENT

DRUGS (1)
  1. LEVETIRACETAM [Suspect]
     Active Substance: LEVETIRACETAM
     Indication: Status epilepticus
     Route: 042

REACTIONS (5)
  - Off label use [Unknown]
  - Agitation [Unknown]
  - Rash [Unknown]
  - Aggression [Unknown]
  - Delirium [Unknown]
